FAERS Safety Report 5440450-8 (Version None)
Quarter: 2007Q3

REPORT INFORMATION
  Report Type: 
  Country: None (occurrence: None)
  Receive Date: 20070831
  Receipt Date: 20070816
  Transmission Date: 20080115
  Serious: Yes (Hospitalization)
  Sender: FDA-Public Use
  Company Number: FR-ROCHE-512271

PATIENT
  Age: 51 Year
  Sex: Male

DRUGS (4)
  1. PEGASYS [Suspect]
     Indication: DRUG USE FOR UNKNOWN INDICATION
     Route: 058
     Dates: start: 20060726
  2. COPEGUS [Suspect]
     Route: 048
     Dates: start: 20060726
  3. REBETOL [Suspect]
     Indication: DRUG USE FOR UNKNOWN INDICATION
     Route: 065
     Dates: end: 20060726
  4. VIRAFERONPEG [Suspect]
     Route: 065
     Dates: end: 20060726

REACTIONS (1)
  - ALCOHOL DETOXIFICATION [None]
